FAERS Safety Report 11095069 (Version 1)
Quarter: 2015Q2

REPORT INFORMATION
  Report Type: Spontaneous
  Country: US (occurrence: US)
  Receive Date: 20150506
  Receipt Date: 20150506
  Transmission Date: 20150821
  Serious: No
  Sender: FDA-Public Use
  Company Number: US-SA-2014SA055788

PATIENT
  Age: 27 Year
  Sex: Male

DRUGS (1)
  1. APIDRA [Suspect]
     Active Substance: INSULIN GLULISINE
     Indication: TYPE 1 DIABETES MELLITUS
     Dosage: PRODUCT START DATE: 8-9 YEARS?DOSAGE: 6-9 UNITS
     Route: 058

REACTIONS (1)
  - Hyperglycaemia [Unknown]
